FAERS Safety Report 7304458-X (Version None)
Quarter: 2011Q1

REPORT INFORMATION
  Report Type: 
  Country: None (occurrence: None)
  Receive Date: 20110221
  Receipt Date: 20110215
  Transmission Date: 20110831
  Serious: Yes (Hospitalization)
  Sender: FDA-Public Use
  Company Number: US-RB-022172-11

PATIENT
  Age: 34 Year
  Sex: Male

DRUGS (4)
  1. SEROQUEL [Concomitant]
     Indication: ANXIETY
     Dosage: DOSING DETAILS UNKNOWN
     Route: 065
     Dates: start: 20100101, end: 20100101
  2. ATIVAN [Suspect]
     Indication: ANXIETY
     Dosage: DOSING DETAILS UNKNOWN
     Route: 065
     Dates: start: 20100101, end: 20100101
  3. SUBOXONE [Suspect]
     Route: 060
     Dates: start: 20040101, end: 20110101
  4. SUBOXONE [Suspect]
     Indication: DRUG DEPENDENCE
     Dosage: DOSING DETAILS UNKNOWN
     Route: 060
     Dates: start: 20110101

REACTIONS (8)
  - MALAISE [None]
  - DRUG WITHDRAWAL SYNDROME [None]
  - THINKING ABNORMAL [None]
  - PULMONARY EMBOLISM [None]
  - CHEST PAIN [None]
  - ABNORMAL BEHAVIOUR [None]
  - ANXIETY [None]
  - NIGHT SWEATS [None]
